FAERS Safety Report 10271880 (Version 1)
Quarter: 2014Q3

REPORT INFORMATION
  Report Type: Spontaneous
  Country: US (occurrence: US)
  Receive Date: 20140702
  Receipt Date: 20140702
  Transmission Date: 20150326
  Serious: Yes (Hospitalization)
  Sender: FDA-Public Use
  Company Number: PHHY2014US078457

PATIENT
  Age: 67 Year
  Sex: Female

DRUGS (10)
  1. LEVOTHYROXINE [Concomitant]
     Active Substance: LEVOTHYROXINE
     Indication: HYPOTHYROIDISM
  2. LEVOFLOXACIN [Suspect]
     Active Substance: LEVOFLOXACIN
     Dosage: 500 MG, UNK
     Route: 048
  3. AMLODIPINE [Concomitant]
     Active Substance: AMLODIPINE BESYLATE
     Indication: HYPERTENSION
  4. PREDNISONE. [Concomitant]
     Active Substance: PREDNISONE
     Dosage: 60 MG, BID
     Route: 048
  5. LEVOFLOXACIN [Suspect]
     Active Substance: LEVOFLOXACIN
     Dosage: 500 MG, UNK
     Route: 042
  6. METOPROLOL [Concomitant]
     Active Substance: METOPROLOL
     Indication: HYPERTENSION
  7. VANCOMYCIN [Concomitant]
     Active Substance: VANCOMYCIN
     Route: 042
  8. MOXIFLOXACIN [Concomitant]
     Active Substance: MOXIFLOXACIN
  9. STEROIDS [Concomitant]
     Active Substance: UNSPECIFIED INGREDIENT
  10. CEFTAZIDIME. [Concomitant]
     Active Substance: CEFTAZIDIME
     Route: 042

REACTIONS (9)
  - Hyperbilirubinaemia [Recovering/Resolving]
  - Ocular icterus [Recovering/Resolving]
  - Alopecia [Recovering/Resolving]
  - Vanishing bile duct syndrome [Recovering/Resolving]
  - Chromaturia [Recovering/Resolving]
  - Hepatitis cholestatic [Recovering/Resolving]
  - Drug-induced liver injury [Recovering/Resolving]
  - Jaundice [Recovering/Resolving]
  - Portal fibrosis [Recovering/Resolving]
